FAERS Safety Report 8451111-5 (Version None)
Quarter: 2012Q2

REPORT INFORMATION
  Report Type: 
  Country: None (occurrence: None)
  Receive Date: 20120613
  Receipt Date: 20120608
  Transmission Date: 20120825
  Serious: Yes (Other)
  Sender: FDA-Public Use
  Company Number: 2012139420

PATIENT
  Age: 23 Year
  Sex: Female
  Weight: 102 kg

DRUGS (1)
  1. DALTEPARIN SODIUM [Suspect]
     Indication: PROPHYLAXIS
     Dosage: 25 IU, 1X/DAY, SUBCUTANEOUS
     Route: 058
     Dates: start: 20120513, end: 20120515

REACTIONS (5)
  - DIZZINESS [None]
  - MATERNAL EXPOSURE DURING PREGNANCY [None]
  - NAUSEA [None]
  - PALPITATIONS [None]
  - MALAISE [None]
